FAERS Safety Report 4756171-0 (Version None)
Quarter: 2005Q3

REPORT INFORMATION
  Report Type: 
  Country: None (occurrence: None)
  Receive Date: 20050829
  Receipt Date: 20050829
  Transmission Date: 20060218
  Serious: Yes (Hospitalization)
  Sender: FDA-Public Use
  Company Number: None

PATIENT
  Age: 51 Year
  Sex: Female
  Weight: 62 kg

DRUGS (13)
  1. DIGOXIN [Suspect]
     Indication: CARDIAC FAILURE CONGESTIVE
     Dosage: 0.25 MG  DAILY  ORAL
     Route: 048
     Dates: start: 20030101, end: 20040928
  2. LASIX [Concomitant]
  3. ENALAPRIL [Concomitant]
  4. K-DUR 10 [Concomitant]
  5. FOLBEE [Concomitant]
  6. PLAVIX [Concomitant]
  7. LIPITOR [Concomitant]
  8. ALTACE [Concomitant]
  9. COREG [Concomitant]
  10. SPIRONOLACTONE [Concomitant]
  11. METOPROLOL [Concomitant]
  12. ATROVENT [Concomitant]
  13. ALBUTEROL [Concomitant]

REACTIONS (4)
  - BLOOD PRESSURE SYSTOLIC INCREASED [None]
  - DYSPNOEA [None]
  - NAUSEA [None]
  - VOMITING [None]
